FAERS Safety Report 9917471 (Version 2)
Quarter: 2014Q2

REPORT INFORMATION
  Report Type: Spontaneous
  Country: US (occurrence: US)
  Receive Date: 20140221
  Receipt Date: 20140416
  Transmission Date: 20141212
  Serious: No
  Sender: FDA-Public Use
  Company Number: US-PFIZER INC-2014048041

PATIENT
  Age: 45 Year
  Sex: Female
  Weight: 58.96 kg

DRUGS (3)
  1. ADVIL COLD AND SINUS [Suspect]
     Indication: HEADACHE
     Dosage: (IBUPROFEN 200MG/ PSEUDOEPHEDRINE HYDROCHLORIDE 30MG), ONCE
     Route: 048
     Dates: start: 20140217, end: 20140217
  2. ADVIL COLD AND SINUS [Suspect]
     Indication: NASAL CONGESTION
  3. SYNTHROID [Concomitant]
     Indication: THYROID DISORDER
     Dosage: UNK

REACTIONS (1)
  - Drug ineffective [Unknown]
